FAERS Safety Report 8815768 (Version 2)
Quarter: 2012Q4

REPORT INFORMATION
  Report Type: Report from Study
  Country: US (occurrence: US)
  Receive Date: 20120928
  Receipt Date: 20121115
  Transmission Date: 20130627
  Serious: Yes (Hospitalization)
  Sender: FDA-Public Use
  Company Number: US-US-EMD SERONO, INC.-7163292

PATIENT
  Sex: Female
  Weight: 100 kg

DRUGS (2)
  1. REBIF [Suspect]
     Indication: MULTIPLE SCLEROSIS
     Route: 058
     Dates: start: 20080909
  2. STEROID PACK [Concomitant]
     Indication: HYPOAESTHESIA
     Dates: start: 2006, end: 2006

REACTIONS (1)
  - Osteoarthritis [Recovered/Resolved]
